FAERS Safety Report 20485939 (Version 2)
Quarter: 2022Q1

REPORT INFORMATION
  Report Type: Spontaneous
  Country: US (occurrence: US)
  Receive Date: 20220217
  Receipt Date: 20220303
  Transmission Date: 20220424
  Serious: Yes (Other)
  Sender: FDA-Public Use
  Company Number: US-TEVA-2022-US-2007192

PATIENT
  Age: 60 Year
  Sex: Female

DRUGS (4)
  1. HYDROXYCHLOROQUINE [Suspect]
     Active Substance: HYDROXYCHLOROQUINE
     Indication: Dermatomyositis
     Route: 065
  2. MYCOPHENOLATE MOFETIL [Suspect]
     Active Substance: MYCOPHENOLATE MOFETIL
     Indication: Dermatomyositis
     Dosage: 3000 MILLIGRAM DAILY; MAXIMUM DOSE (UP TO 3000 MG/DAY)
     Route: 065
  3. QUINACRINE [Suspect]
     Active Substance: QUINACRINE
     Indication: Dermatomyositis
     Route: 065
  4. METHOTREXATE [Concomitant]
     Active Substance: METHOTREXATE
     Indication: Dermatomyositis
     Dosage: INITIAL DOSE UNKNOWN
     Route: 065

REACTIONS (1)
  - Dermatomyositis [Recovering/Resolving]
